FAERS Safety Report 19953815 (Version 8)
Quarter: 2022Q1

REPORT INFORMATION
  Report Type: Spontaneous
  Country: DE (occurrence: DE)
  Receive Date: 20211014
  Receipt Date: 20220105
  Transmission Date: 20220424
  Serious: Yes (Life-Threatening, Hospitalization, Other)
  Sender: FDA-Public Use
  Company Number: DE-JNJFOC-20211019881

PATIENT
  Age: 23 Year
  Sex: Male

DRUGS (1)
  1. REMICADE [Suspect]
     Active Substance: INFLIXIMAB
     Indication: Crohn^s disease
     Dosage: STARTED 11 MONTHS AGO
     Route: 042

REACTIONS (3)
  - Lupus-like syndrome [Unknown]
  - Myocarditis [Recovered/Resolved]
  - Ischaemic hepatitis [Recovered/Resolved]
